FAERS Safety Report 19650565 (Version 2)
Quarter: 2021Q3

REPORT INFORMATION
  Report Type: Spontaneous
  Country: CH (occurrence: CH)
  Receive Date: 20210803
  Receipt Date: 20210803
  Transmission Date: 20211014
  Serious: Yes (Other)
  Sender: FDA-Public Use
  Company Number: CH-CELGENEUS-CHE-20210705582

PATIENT
  Sex: Male

DRUGS (4)
  1. ARANESP [Suspect]
     Active Substance: DARBEPOETIN ALFA
     Indication: MYELOFIBROSIS
     Route: 065
     Dates: start: 2018
  2. LITALIR [Suspect]
     Active Substance: HYDROXYUREA
     Indication: MYELOFIBROSIS
     Route: 065
     Dates: end: 2020
  3. INREBIC [Suspect]
     Active Substance: FEDRATINIB HYDROCHLORIDE
     Indication: MYELOFIBROSIS
     Route: 048
     Dates: start: 20210326, end: 20210625
  4. INREBIC [Suspect]
     Active Substance: FEDRATINIB HYDROCHLORIDE
     Route: 048

REACTIONS (3)
  - Anaemia [Unknown]
  - Full blood count decreased [Unknown]
  - Reticulocytopenia [Unknown]
